FAERS Safety Report 7995287-2 (Version None)
Quarter: 2011Q4

REPORT INFORMATION
  Report Type: 
  Country: None (occurrence: None)
  Receive Date: 20111220
  Receipt Date: 20111215
  Transmission Date: 20120403
  Serious: Yes (Other)
  Sender: FDA-Public Use
  Company Number: NO-ABBOTT-11P-122-0859916-00

PATIENT
  Sex: Male

DRUGS (13)
  1. FOLSYRE [Concomitant]
     Indication: PRODUCT USED FOR UNKNOWN INDICATION
  2. IMURAN [Concomitant]
     Indication: PRODUCT USED FOR UNKNOWN INDICATION
     Dosage: IMUREL WAS STARTED DUE TO AE'S FROM METHOTREXATE
  3. HUMIRA [Suspect]
     Indication: RHEUMATOID ARTHRITIS
     Dosage: IN COMBINATION WITH IMUREL
     Dates: end: 20090801
  4. CALCIGRAN FORTE [Concomitant]
     Indication: PRODUCT USED FOR UNKNOWN INDICATION
     Dosage: EVENING
  5. CETIRIZINE HCL [Concomitant]
     Indication: PRODUCT USED FOR UNKNOWN INDICATION
     Route: 048
     Dates: start: 20100923
  6. PANTOPRAZOLE [Concomitant]
     Indication: PRODUCT USED FOR UNKNOWN INDICATION
  7. ENBREL [Suspect]
     Indication: RHEUMATOID ARTHRITIS
     Dates: start: 20090901, end: 20100612
  8. SOLU-MEDROL [Concomitant]
     Indication: PRODUCT USED FOR UNKNOWN INDICATION
     Route: 042
     Dates: start: 20100923
  9. BETAMETHASONE [Concomitant]
     Indication: ARTHRITIS
     Route: 030
  10. ACETAMINOPHEN [Concomitant]
     Indication: PRODUCT USED FOR UNKNOWN INDICATION
     Dosage: UP TO 4 TIMES DAILY
     Route: 048
     Dates: start: 20100923
  11. IBUPROFEN [Concomitant]
     Indication: PRODUCT USED FOR UNKNOWN INDICATION
     Dosage: UP TO 3 TIMES DAILY
  12. METHOTREXATE SODIUM [Suspect]
     Indication: PRODUCT USED FOR UNKNOWN INDICATION
     Dosage: ONCE A WEEK: EVERY TUESDAY
  13. FOLSYRE [Concomitant]

REACTIONS (13)
  - BLEPHAROSPASM [None]
  - ARTHRITIS [None]
  - OCULAR MYASTHENIA [None]
  - NAUSEA [None]
  - VOMITING [None]
  - DIPLOPIA [None]
  - EYELID DISORDER [None]
  - PAIN [None]
  - ACTIVITIES OF DAILY LIVING IMPAIRED [None]
  - EYELID PTOSIS [None]
  - PYREXIA [None]
  - TRISMUS [None]
  - RECTAL HAEMORRHAGE [None]
